FAERS Safety Report 8740525 (Version 2)
Quarter: 2013Q1

REPORT INFORMATION
  Report Type: Spontaneous
  Country: US (occurrence: US)
  Receive Date: 20120823
  Receipt Date: 20130109
  Transmission Date: 20140127
  Serious: No
  Sender: FDA-Public Use
  Company Number: US-009507513-1208USA008222

PATIENT
  Sex: 0

DRUGS (1)
  1. EMEND [Suspect]
     Route: 048

REACTIONS (3)
  - Drug administration error [Unknown]
  - Capsule physical issue [Unknown]
  - No adverse event [Unknown]
